FAERS Safety Report 10101694 (Version 1)
Quarter: 2014Q2

REPORT INFORMATION
  Report Type: Spontaneous
  Country: JP (occurrence: None)
  Receive Date: 20140422
  Receipt Date: 20140422
  Transmission Date: 20141212
  Serious: Yes (Other)
  Sender: FDA-Public Use
  Company Number: KAD201404-000409

PATIENT
  Age: 64 Year
  Sex: Female

DRUGS (5)
  1. RIBAVIRIN [Suspect]
  2. PEGINTERFERON ALFA-2B [Suspect]
     Indication: HEPATITIS C
     Dosage: 1.5 MCG/KG/WEEK
  3. TELAPREVIR [Suspect]
     Indication: HEPATITIS C
  4. CYCLOSPORINE A [Suspect]
     Dosage: 150-250 NG/ML
  5. MYCOPHENOLATE MOFETIL [Suspect]

REACTIONS (2)
  - Hepatitis [None]
  - Plasma cell disorder [None]
